FAERS Safety Report 20193126 (Version 1)
Quarter: 2021Q4

REPORT INFORMATION
  Report Type: Spontaneous
  Country: US (occurrence: None)
  Receive Date: 20211215
  Receipt Date: 20211215
  Transmission Date: 20220303
  Serious: Yes (Death)
  Sender: FDA-Public Use
  Company Number: None

PATIENT
  Age: 59 Year
  Sex: Male
  Weight: 136.3 kg

DRUGS (3)
  1. TOCILIZUMAB [Suspect]
     Active Substance: TOCILIZUMAB
     Indication: COVID-19
     Dosage: OTHER FREQUENCY : ONCE;?
     Route: 042
     Dates: start: 20211202, end: 20211202
  2. REMDESIVIR [Concomitant]
     Active Substance: REMDESIVIR
     Dates: start: 20211202, end: 20211206
  3. DEXAMETHASONE [Concomitant]
     Active Substance: DEXAMETHASONE
     Dates: start: 20211203, end: 20211211

REACTIONS (10)
  - Acidosis [None]
  - Hyperkalaemia [None]
  - Hypoxia [None]
  - Leukocytosis [None]
  - Agitation [None]
  - Blood culture positive [None]
  - Staphylococcal infection [None]
  - Confusional state [None]
  - Aortic thrombosis [None]
  - Ecchymosis [None]

NARRATIVE: CASE EVENT DATE: 20211212
